FAERS Safety Report 10761050 (Version 2)
Quarter: 2015Q2

REPORT INFORMATION
  Report Type: Spontaneous
  Country: US (occurrence: US)
  Receive Date: 20150204
  Receipt Date: 20150602
  Transmission Date: 20150821
  Serious: Yes (Life-Threatening, Hospitalization)
  Sender: FDA-Public Use
  Company Number: US-BAYER-2015-015556

PATIENT
  Age: 31 Year
  Sex: Female
  Weight: 55.33 kg

DRUGS (1)
  1. MIRENA [Suspect]
     Active Substance: LEVONORGESTREL
     Dosage: 20 MCG/24HR, CONT
     Route: 015
     Dates: start: 20120323, end: 20130313

REACTIONS (10)
  - Device issue [None]
  - Surgery [None]
  - Activities of daily living impaired [None]
  - Abdominal pain [None]
  - Injury [None]
  - Uterine perforation [None]
  - General physical health deterioration [None]
  - Infection [None]
  - Amenorrhoea [None]
  - Hormone level abnormal [None]

NARRATIVE: CASE EVENT DATE: 201211
